FAERS Safety Report 10298220 (Version 1)
Quarter: 2014Q3

REPORT INFORMATION
  Report Type: Spontaneous
  Country: US (occurrence: US)
  Receive Date: 20140711
  Receipt Date: 20140711
  Transmission Date: 20150326
  Serious: No
  Sender: FDA-Public Use
  Company Number: US-GLAXOSMITHKLINE-A1060284A

PATIENT
  Sex: Male

DRUGS (4)
  1. VENTOLIN (NEBULISER) [Concomitant]
  2. METFORMIN [Concomitant]
     Active Substance: METFORMIN HYDROCHLORIDE
  3. FLOVENT [Suspect]
     Active Substance: FLUTICASONE PROPIONATE
     Indication: CHRONIC OBSTRUCTIVE PULMONARY DISEASE
     Route: 055
  4. VENTOLIN HFA [Concomitant]
     Active Substance: ALBUTEROL SULFATE

REACTIONS (2)
  - Drug ineffective [Unknown]
  - Asthma [Unknown]
